FAERS Safety Report 6579462-X (Version None)
Quarter: 2010Q1

REPORT INFORMATION
  Report Type: 
  Country: None (occurrence: None)
  Receive Date: 20100209
  Receipt Date: 20100209
  Transmission Date: 20100710
  Serious: Yes (Life-Threatening, Hospitalization, Disabling, Other)
  Sender: FDA-Public Use
  Company Number: None

PATIENT
  Age: 41 Year
  Sex: Male
  Weight: 108.8633 kg

DRUGS (1)
  1. IRINOTECAN HCL [Suspect]

REACTIONS (15)
  - CHEST PAIN [None]
  - CONFUSIONAL STATE [None]
  - DEVICE RELATED INFECTION [None]
  - DYSPHAGIA [None]
  - HEMIPARESIS [None]
  - HYPOAESTHESIA [None]
  - INJECTION SITE SWELLING [None]
  - LIP SWELLING [None]
  - MOTOR DYSFUNCTION [None]
  - NEOPLASM PROGRESSION [None]
  - OROPHARYNGEAL PAIN [None]
  - PNEUMONIA [None]
  - PNEUMONIA ASPIRATION [None]
  - SWELLING FACE [None]
  - SWOLLEN TONGUE [None]
